FAERS Safety Report 18199291 (Version 6)
Quarter: 2020Q4

REPORT INFORMATION
  Report Type: Report from Study
  Country: CA (occurrence: CA)
  Receive Date: 20200826
  Receipt Date: 20201226
  Transmission Date: 20210113
  Serious: Yes (Death, Hospitalization, Other)
  Sender: FDA-Public Use
  Company Number: NVSC2020CA088055

PATIENT
  Age: 70 Year
  Sex: Female

DRUGS (4)
  1. LENVIMA [Concomitant]
     Active Substance: LENVATINIB
     Indication: PRODUCT USED FOR UNKNOWN INDICATION
     Dosage: 1 MG, QD
     Route: 065
     Dates: start: 20200415
  2. SANDOSTATIN LAR DEPOT [Suspect]
     Active Substance: OCTREOTIDE ACETATE
     Indication: CARCINOID TUMOUR
     Dosage: 30 MG, QMO (EVERY 4 WEEKS)
     Route: 030
     Dates: start: 20191108
  3. SANDOSTATIN LAR DEPOT [Suspect]
     Active Substance: OCTREOTIDE ACETATE
  4. SANDOSTATIN LAR DEPOT [Suspect]
     Active Substance: OCTREOTIDE ACETATE

REACTIONS (13)
  - Weight decreased [Unknown]
  - Dyspepsia [Unknown]
  - Diarrhoea [Unknown]
  - Ascites [Fatal]
  - Abdominal discomfort [Not Recovered/Not Resolved]
  - Injection site pain [Unknown]
  - Asthenia [Unknown]
  - Decreased appetite [Unknown]
  - Blood sodium decreased [Unknown]
  - General physical health deterioration [Unknown]
  - Injection site discomfort [Unknown]
  - Blood pressure increased [Unknown]
  - Vascular fragility [Unknown]

NARRATIVE: CASE EVENT DATE: 2020
